FAERS Safety Report 5345878-2 (Version None)
Quarter: 2007Q2

REPORT INFORMATION
  Report Type: 
  Country: None (occurrence: None)
  Receive Date: 20070430
  Receipt Date: 20070307
  Transmission Date: 20071010
  Serious: No
  Sender: FDA-Public Use
  Company Number: 261539

PATIENT
  Age: 59 Year
  Sex: Male
  Weight: 56.7 kg

DRUGS (1)
  1. LEVEMIR FLEX PEN(INSULIN DETEMIR) SOLUTION FOR INJECTION, .00024MOL/L [Suspect]
     Indication: INSULIN-REQUIRING TYPE II DIABETES MELLITUS
     Dosage: 24 IU, QD, SUBCUTANEOUS
     Route: 058
     Dates: start: 20060101

REACTIONS (1)
  - BLOOD GLUCOSE INCREASED [None]
